FAERS Safety Report 24594408 (Version 1)
Quarter: 2024Q4

REPORT INFORMATION
  Report Type: Spontaneous
  Country: US (occurrence: US)
  Receive Date: 20241108
  Receipt Date: 20241108
  Transmission Date: 20250115
  Serious: Yes (Death, Life-Threatening, Hospitalization, Other)
  Sender: AMGEN
  Company Number: US-AMGEN-USASP2024220623

PATIENT
  Age: 51 Year
  Sex: Female

DRUGS (5)
  1. PREDNISONE [Suspect]
     Active Substance: PREDNISONE
     Indication: Renal transplant
     Dosage: UNK
     Route: 065
  2. BASILIXIMAB [Concomitant]
     Active Substance: BASILIXIMAB
  3. BELATACEPT [Concomitant]
     Active Substance: BELATACEPT
  4. TACROLIMUS [Concomitant]
     Active Substance: TACROLIMUS
  5. MYCOPHENOLATE MOFETIL [Concomitant]
     Active Substance: MYCOPHENOLATE MOFETIL

REACTIONS (13)
  - Cardiac arrest [Fatal]
  - Multiple organ dysfunction syndrome [Unknown]
  - Generalised oedema [Unknown]
  - Ascites [Unknown]
  - Klebsiella bacteraemia [Unknown]
  - Hepatic encephalopathy [Unknown]
  - Septic pulmonary embolism [Unknown]
  - Acute kidney injury [Unknown]
  - Portal hypertension [Unknown]
  - Vascular compression [Unknown]
  - Splenomegaly [Unknown]
  - Focal nodular hyperplasia [Unknown]
  - Vascular insufficiency [Unknown]

NARRATIVE: CASE EVENT DATE: 20201001
